FAERS Safety Report 9147601 (Version 1)
Quarter: 2013Q1

REPORT INFORMATION
  Report Type: Spontaneous
  Country: US (occurrence: US)
  Receive Date: 20130307
  Receipt Date: 20130307
  Transmission Date: 20140127
  Serious: No
  Sender: FDA-Public Use
  Company Number: US-ASTRAZENECA-2013SE10769

PATIENT
  Age: 64 Year
  Sex: Female
  Weight: 94.8 kg

DRUGS (15)
  1. NEXIUM [Suspect]
     Indication: GASTROOESOPHAGEAL REFLUX DISEASE
     Route: 048
     Dates: start: 2005, end: 20130202
  2. BELLADONNA [Concomitant]
     Indication: DIARRHOEA
  3. CLONOPIN [Concomitant]
     Indication: HYPERHIDROSIS
  4. LEXAPRO [Concomitant]
     Indication: FIBROMYALGIA
  5. CYCLOBENZAPRINE [Concomitant]
     Indication: SLEEP DISORDER
  6. ZOLPIDEM [Concomitant]
     Indication: SLEEP DISORDER
  7. METFORMIN [Concomitant]
     Indication: DIABETES MELLITUS
  8. GENERIC FOR ZYRTEC [Concomitant]
     Indication: MULTIPLE ALLERGIES
  9. VITAMIN D3 [Concomitant]
  10. IRON [Concomitant]
  11. LEVOTHYROXINE [Concomitant]
     Indication: HYPOTHYROIDISM
  12. LANTISS [Concomitant]
     Indication: DIABETES MELLITUS
  13. IMODIUM [Concomitant]
     Indication: DIARRHOEA
  14. ADVAIR [Concomitant]
     Indication: COUGH
  15. COUGH SYRUP WITH CODEINE [Concomitant]
     Indication: COUGH

REACTIONS (10)
  - Gastrooesophageal reflux disease [Unknown]
  - Gastritis [Unknown]
  - Polyp [Unknown]
  - Dyspepsia [Unknown]
  - Dyspepsia [Unknown]
  - Hiatus hernia [Unknown]
  - Type 2 diabetes mellitus [Unknown]
  - Influenza [Unknown]
  - Hypothyroidism [Unknown]
  - Diarrhoea [Unknown]
